FAERS Safety Report 5807415-5 (Version None)
Quarter: 2008Q3

REPORT INFORMATION
  Report Type: 
  Country: None (occurrence: None)
  Receive Date: 20080711
  Receipt Date: 20080627
  Transmission Date: 20090109
  Serious: Yes (Other)
  Sender: FDA-Public Use
  Company Number: CA-ROCHE-573936

PATIENT
  Age: 44 Year
  Sex: Male
  Weight: 89 kg

DRUGS (8)
  1. PEG-INTERFERON A-2A (RO 25-8310) [Suspect]
     Indication: DRUG USE FOR UNKNOWN INDICATION
     Dosage: FREQUENCY: WEEKLY
     Route: 065
  2. RIBAVIRIN [Suspect]
     Indication: DRUG USE FOR UNKNOWN INDICATION
     Dosage: FREQUENCY REPORTED AS WEEKLY
     Route: 065
  3. CLOZARIL [Suspect]
     Indication: DRUG USE FOR UNKNOWN INDICATION
     Dosage: FREQUENCY: DAILY
     Route: 048
  4. RISPERIDONE [Concomitant]
  5. BENZTROPINE MESYLATE [Concomitant]
     Dosage: REPORTED AS PMS-BENZTROPINE
  6. PREVACID [Concomitant]
  7. ALDACTONE [Concomitant]
  8. LASIX [Concomitant]

REACTIONS (11)
  - ASCITES [None]
  - BLOOD BILIRUBIN INCREASED [None]
  - FATIGUE [None]
  - FLUID RETENTION [None]
  - LETHARGY [None]
  - NEUTROPENIA [None]
  - PNEUMONIA [None]
  - RED BLOOD CELL COUNT DECREASED [None]
  - SEPSIS [None]
  - SPLEEN DISORDER [None]
  - THROMBOCYTOPENIA [None]
